FAERS Safety Report 14297005 (Version 1)
Quarter: 2017Q4

REPORT INFORMATION
  Report Type: Spontaneous
  Country: CH (occurrence: CH)
  Receive Date: 20171218
  Receipt Date: 20171218
  Transmission Date: 20180321
  Serious: Yes (Life-Threatening, Other)
  Sender: FDA-Public Use
  Company Number: CH-GLAXOSMITHKLINE-CH2017186556

PATIENT
  Age: 65 Year
  Sex: Male
  Weight: 79 kg

DRUGS (9)
  1. ASPIRINE [Concomitant]
     Active Substance: ASPIRIN
     Indication: PRODUCT USED FOR UNKNOWN INDICATION
     Route: 048
     Dates: end: 20171021
  2. ROPIVACAINE [Interacting]
     Active Substance: ROPIVACAINE
     Indication: ANAESTHESIA
     Dosage: 20 MG, UNK
     Route: 040
     Dates: start: 20171031, end: 20171031
  3. FENTANYL. [Interacting]
     Active Substance: FENTANYL
     Indication: ANAESTHESIA
     Dosage: 25 ?G, UNK
     Route: 041
     Dates: start: 20171031, end: 20171031
  4. ZINACEF [Suspect]
     Active Substance: CEFUROXIME SODIUM
     Indication: ANTIBIOTIC PROPHYLAXIS
     Dosage: 1.5 G, UNK
     Route: 040
     Dates: start: 20171031, end: 20171031
  5. TRANEXAM [Interacting]
     Active Substance: TRANEXAMIC ACID
     Indication: SURGERY
     Dosage: 1 G, UNK
     Route: 041
     Dates: start: 20171031
  6. CLONIDINE. [Interacting]
     Active Substance: CLONIDINE
     Indication: ANAESTHESIA
     Dosage: 15 ?G, UNK
     Route: 040
     Dates: start: 20171031, end: 20171031
  7. ATACAND [Concomitant]
     Active Substance: CANDESARTAN CILEXETIL
     Indication: HYPERTENSION
     Route: 048
     Dates: end: 20171030
  8. BUPIVACAINE. [Interacting]
     Active Substance: BUPIVACAINE
     Indication: ANAESTHESIA
     Dosage: 12 MG, UNK
     Route: 040
     Dates: start: 20171031, end: 20171031
  9. METFIN [Concomitant]
     Active Substance: METFORMIN HYDROCHLORIDE
     Indication: TYPE 2 DIABETES MELLITUS
     Dosage: 500 MG, BID
     Route: 048
     Dates: end: 20171030

REACTIONS (4)
  - Bradycardia [Recovered/Resolved]
  - Off label use [Recovered/Resolved]
  - Drug interaction [Unknown]
  - Hypotension [Recovered/Resolved]

NARRATIVE: CASE EVENT DATE: 20171031
